FAERS Safety Report 20584560 (Version 3)
Quarter: 2022Q2

REPORT INFORMATION
  Report Type: Other
  Country: DE (occurrence: None)
  Receive Date: 20220311
  Receipt Date: 20220505
  Transmission Date: 20220720
  Serious: No
  Sender: FDA-Public Use
  Company Number: DE-ROCHE-3046964

PATIENT
  Age: 37 Year
  Sex: Female

DRUGS (14)
  1. OCRELIZUMAB [Suspect]
     Active Substance: OCRELIZUMAB
     Indication: Relapsing multiple sclerosis
     Dosage: ONCE
     Route: 042
     Dates: start: 20220107
  2. CHOLECALCIFEROL [Concomitant]
     Active Substance: CHOLECALCIFEROL
     Indication: Vitamin D deficiency
     Route: 048
     Dates: start: 20211220
  3. LYRICA [Concomitant]
     Active Substance: PREGABALIN
     Indication: Neuralgia
     Route: 048
     Dates: start: 202107
  4. SPASMEX (GERMANY) [Concomitant]
     Route: 048
     Dates: start: 20211230
  5. IBUPROFEN [Concomitant]
     Active Substance: IBUPROFEN
     Indication: Restless legs syndrome
     Route: 048
     Dates: start: 2008
  6. IBUPROFEN [Concomitant]
     Active Substance: IBUPROFEN
     Indication: Neuralgia
  7. BENSERAZIDE\LEVODOPA [Concomitant]
     Active Substance: BENSERAZIDE\LEVODOPA
     Indication: Restless legs syndrome
     Route: 048
     Dates: start: 200901
  8. SARS-COV-2 VACCINE [Concomitant]
     Indication: Prophylaxis
     Dosage: OTHER
     Route: 030
     Dates: start: 20211208, end: 20211208
  9. PREDNISOLONE [Concomitant]
     Active Substance: PREDNISOLONE
     Route: 042
     Dates: start: 20210107, end: 20210107
  10. PREDNISOLONE [Concomitant]
     Active Substance: PREDNISOLONE
     Dosage: ONCE
     Route: 042
     Dates: start: 20210121, end: 20210121
  11. EBASTINE [Concomitant]
     Active Substance: EBASTINE
     Route: 048
     Dates: start: 20220106, end: 20220108
  12. EBASTINE [Concomitant]
     Active Substance: EBASTINE
     Route: 048
     Dates: start: 20220120, end: 20220122
  13. DALFAMPRIDINE [Concomitant]
     Active Substance: DALFAMPRIDINE
     Route: 048
     Dates: start: 202203
  14. NEUPRO [Concomitant]
     Active Substance: ROTIGOTINE
     Indication: Restless legs syndrome
     Dates: start: 2008

REACTIONS (3)
  - COVID-19 [Unknown]
  - Infusion related reaction [Recovered/Resolved]
  - Urinary tract infection [Unknown]

NARRATIVE: CASE EVENT DATE: 20220107
